FAERS Safety Report 22880761 (Version 2)
Quarter: 2023Q4

REPORT INFORMATION
  Report Type: Report from Study
  Country: CH (occurrence: CH)
  Receive Date: 20230830
  Receipt Date: 20231018
  Transmission Date: 20240110
  Serious: Yes (Hospitalization)
  Sender: FDA-Public Use
  Company Number: CH-ABBVIE-5385291

PATIENT
  Age: 65 Year
  Sex: Female

DRUGS (14)
  1. CARBIDOPA\LEVODOPA [Suspect]
     Active Substance: CARBIDOPA\LEVODOPA
     Indication: Parkinson^s disease
     Dosage: MD: 2.0 ML, CRD: 3.1 ML/H  CRN:2.0  ML/H, ED: 1.5?FREQUENCY TEXT: 24H THERAPY
     Route: 050
     Dates: start: 20230526, end: 20230623
  2. CARBIDOPA\LEVODOPA [Suspect]
     Active Substance: CARBIDOPA\LEVODOPA
     Dosage: MD: 2.0 ML, CRD: 3.3 ML/H  CRN: 2.2 ML/H, ED: 1.5?FREQUENCY TEXT: 24H THERAPY
     Route: 050
     Dates: start: 20230109, end: 20230201
  3. CARBIDOPA\LEVODOPA [Suspect]
     Active Substance: CARBIDOPA\LEVODOPA
     Dosage: MD: 2.0 ML, CRD: 3.3 ML/H CRN: 2.1 ML/H, ED: 1.5
     Route: 050
     Dates: start: 20230826
  4. CARBIDOPA\LEVODOPA [Suspect]
     Active Substance: CARBIDOPA\LEVODOPA
     Dosage: MD: 2.0 ML, CRD: 3.3 ML/H  CRN: 2.2 ML/H, ED: 1.5?FREQUENCY TEXT: 24H THERAPY
     Route: 050
     Dates: start: 20230106, end: 20230109
  5. CARBIDOPA\LEVODOPA [Suspect]
     Active Substance: CARBIDOPA\LEVODOPA
     Dosage: FREQUENCY TEXT: 24H THERAPY
     Route: 050
     Dates: start: 20210914
  6. CARBIDOPA\LEVODOPA [Suspect]
     Active Substance: CARBIDOPA\LEVODOPA
     Dosage: MD: 2.0 ML, CRD: 3.3 ML/H  CRN: 2.2 ML/H, ED: 1.5?FREQUENCY TEXT: 24H THERAPY
     Route: 050
     Dates: start: 20230414, end: 20230519
  7. CARBIDOPA\LEVODOPA [Suspect]
     Active Substance: CARBIDOPA\LEVODOPA
     Dosage: MD: 2.0 ML, CRD: 3.3 ML/HCRN: 2.2 ML/H, ED: 1.5?FREQUENCY TEXT: 24H THERAPY
     Route: 050
     Dates: start: 20221219, end: 20230106
  8. CARBIDOPA\LEVODOPA [Suspect]
     Active Substance: CARBIDOPA\LEVODOPA
     Dosage: MD: 2.0 ML, CRD: 3.3 ML/H CRN: 2.1 ML/H, ED: 1.5?FREQUENCY TEXT: 24H THERAPY
     Route: 050
     Dates: start: 20230704, end: 20230826
  9. CARBIDOPA\LEVODOPA [Suspect]
     Active Substance: CARBIDOPA\LEVODOPA
     Dosage: MD: 2.0 ML, CRD: 3.3 ML/H  CRN: 3.3 ML/H, ED: 1.5?FREQUENCY TEXT: 24H THERAPY
     Route: 050
     Dates: start: 20230201, end: 20230414
  10. CARBIDOPA\LEVODOPA [Suspect]
     Active Substance: CARBIDOPA\LEVODOPA
     Dosage: MD: 2.0 ML, CRD: 3.3 ML/H CRN: 0.0 ML/H, ED: 1.5?FREQUENCY TEXT: 24H THERAPY
     Route: 050
     Dates: start: 20230623, end: 20230704
  11. CARBIDOPA\LEVODOPA [Suspect]
     Active Substance: CARBIDOPA\LEVODOPA
     Dosage: MD: 2.0 ML, CRD: 3.6 ML/H CRN: 2.2 ML/H, ED: 1.5??FREQUENCY TEXT: 24H THERAPY
     Route: 050
     Dates: start: 20220426, end: 20221219
  12. CARBIDOPA\LEVODOPA [Suspect]
     Active Substance: CARBIDOPA\LEVODOPA
     Dosage: MD: 2.0 ML, CRD: 3.3 ML/H  CRN:0.0 ML/H, ED: 1.5?FREQUENCY TEXT: 24H THERAPY
     Route: 050
     Dates: start: 20230519, end: 20230526
  13. CARBIDOPA LEVODOPA [Concomitant]
     Active Substance: CARBIDOPA\LEVODOPA
     Indication: Product used for unknown indication
     Route: 048
     Dates: start: 202308
  14. BENSERAZIDE HYDROCHLORIDE\LEVODOPA [Concomitant]
     Active Substance: BENSERAZIDE HYDROCHLORIDE\LEVODOPA
     Indication: Product used for unknown indication
     Dosage: LEVODOPUM, BENSERAZIDUM UT BENSERAZIDI HYDROCHLORIDUM
     Route: 048
     Dates: start: 202308

REACTIONS (6)
  - Psychiatric care [Not Recovered/Not Resolved]
  - Off label use [Not Recovered/Not Resolved]
  - Medical device removal [Recovered/Resolved]
  - Device breakage [Not Recovered/Not Resolved]
  - Tremor [Not Recovered/Not Resolved]
  - Device dislocation [Unknown]

NARRATIVE: CASE EVENT DATE: 20230801
